FAERS Safety Report 9406273 (Version 1)
Quarter: 2013Q3

REPORT INFORMATION
  Report Type: Not Available
  Country: FR (occurrence: FR)
  Receive Date: 20130717
  Receipt Date: 20130717
  Transmission Date: 20140515
  Serious: Yes (Hospitalization, Other)
  Sender: FDA-Public Use
  Company Number: FR-RB-509-2004

PATIENT
  Age: 0 Year
  Sex: Male
  Weight: 3.8 kg

DRUGS (4)
  1. TEMGESIC [Suspect]
     Indication: DRUG ABUSE
     Dosage: FROM 14 WEEKS OF AMENORRHEA, DOSE UNKNOWN
     Route: 064
     Dates: start: 199511
  2. SUBUTEX [Suspect]
     Indication: DRUG ABUSE
     Dosage: FROM 24 WEEKS OF AMENORRHEA
     Route: 064
     Dates: start: 19960125, end: 1996
  3. SUBUTEX [Suspect]
     Dosage: 4-8 MG EVERY DAY AT THE END OF PREGNANCY WITH SUSPICION OF SUBUTEX INTRAVENOUS INJECTION
     Route: 064
     Dates: start: 1996, end: 19960514
  4. HEROIN [Suspect]
     Indication: PRODUCT USED FOR UNKNOWN INDICATION
     Dosage: UNKNOWN DRUG DETAILS
     Route: 064

REACTIONS (4)
  - Dehydration [Recovered/Resolved]
  - Clonus [Recovered/Resolved]
  - Drug withdrawal syndrome neonatal [Recovered/Resolved]
  - Foetal exposure during pregnancy [Recovered/Resolved]
